FAERS Safety Report 7313144-1 (Version None)
Quarter: 2011Q1

REPORT INFORMATION
  Report Type: 
  Country: None (occurrence: None)
  Receive Date: 20110216
  Receipt Date: 20110216
  Transmission Date: 20110831
  Serious: Yes (Other)
  Sender: FDA-Public Use
  Company Number: None

PATIENT
  Age: 42 Year
  Sex: Female
  Weight: 104.3273 kg

DRUGS (1)
  1. ALPRAZOLAM ER 3 MG UNKNOWN [Suspect]
     Indication: ANXIETY DISORDER
     Dosage: 3 MG TABLET ONCE IN AM PO
     Route: 048
     Dates: start: 20110114, end: 20110214

REACTIONS (5)
  - DRUG INEFFECTIVE [None]
  - PRODUCT SUBSTITUTION ISSUE [None]
  - NAUSEA [None]
  - PRODUCT FORMULATION ISSUE [None]
  - ANXIETY [None]
